FAERS Safety Report 23526814 (Version 4)
Quarter: 2024Q2

REPORT INFORMATION
  Report Type: Spontaneous
  Country: AR (occurrence: AR)
  Receive Date: 20240215
  Receipt Date: 20240408
  Transmission Date: 20240716
  Serious: No
  Sender: FDA-Public Use
  Company Number: AR-PFIZER INC-PV202300208464

PATIENT
  Age: 11 Year
  Sex: Male

DRUGS (1)
  1. GENOTROPIN [Suspect]
     Active Substance: SOMATROPIN
     Indication: Short stature
     Dosage: 1 TO 1.4MG 7 TIMES PER WEEK
     Dates: start: 20220118, end: 20231110

REACTIONS (1)
  - Injection site pain [Not Recovered/Not Resolved]
